FAERS Safety Report 8561172-0 (Version None)
Quarter: 2012Q3

REPORT INFORMATION
  Report Type: 
  Country: None (occurrence: None)
  Receive Date: 20120802
  Receipt Date: 20120723
  Transmission Date: 20120928
  Serious: Yes (Hospitalization)
  Sender: FDA-Public Use
  Company Number: JP-ACTELION-A-JP2007-14470

PATIENT
  Age: 18 Year
  Sex: Female
  Weight: 43 kg

DRUGS (15)
  1. TRACLEER [Suspect]
     Indication: PULMONARY ARTERIAL HYPERTENSION
     Dosage: 31.25 MG, BID
     Route: 048
     Dates: start: 20051222, end: 20060104
  2. TRACLEER [Suspect]
     Dosage: 93.75 MG, BID
     Route: 048
     Dates: start: 20060118, end: 20060125
  3. TRIAMTERENE [Suspect]
     Indication: RIGHT VENTRICULAR FAILURE
     Dosage: UNK
     Dates: start: 20060426, end: 20061207
  4. DIGOXIN [Concomitant]
  5. TRACLEER [Suspect]
     Dosage: 62.5 MG, BID
     Route: 048
     Dates: start: 20061026, end: 20061207
  6. EPOPROSTENOL SODIUM [Suspect]
     Indication: PULMONARY ARTERIAL HYPERTENSION
     Dosage: UNK
     Dates: start: 20050329
  7. WARFARIN POTASSIUM [Concomitant]
  8. OSELTAMIVIR PHOSPHATE [Concomitant]
  9. SILDENAFIL CITRATE [Suspect]
     Indication: PULMONARY ARTERIAL HYPERTENSION
     Dosage: UNK
     Dates: start: 20050323, end: 20060104
  10. FERROUS CITRATE [Suspect]
     Indication: IRON DEFICIENCY
     Dosage: UNK
     Dates: start: 20060425, end: 20060426
  11. FUROSEMIDE [Concomitant]
  12. TRACLEER [Suspect]
     Dosage: 125 MG, BID
     Route: 048
     Dates: start: 20060126, end: 20061025
  13. TRACLEER [Suspect]
     Dosage: 62.5 MG, BID
     Route: 048
     Dates: start: 20060105, end: 20060117
  14. SPIRONOLACTONE [Concomitant]
  15. BROTIZOLAM [Concomitant]

REACTIONS (11)
  - HEPATIC FUNCTION ABNORMAL [None]
  - ALANINE AMINOTRANSFERASE INCREASED [None]
  - DIARRHOEA [None]
  - VISUAL FIELD DEFECT [None]
  - HEADACHE [None]
  - RIGHT VENTRICULAR FAILURE [None]
  - GINGIVITIS [None]
  - ASPARTATE AMINOTRANSFERASE INCREASED [None]
  - HOT FLUSH [None]
  - PRURITUS [None]
  - ANAEMIA [None]
